FAERS Safety Report 9344247 (Version 1)
Quarter: 2013Q2

REPORT INFORMATION
  Report Type: Report from Study
  Country: US (occurrence: US)
  Receive Date: 20130612
  Receipt Date: 20130612
  Transmission Date: 20140414
  Serious: Yes (Hospitalization)
  Sender: FDA-Public Use
  Company Number: US-ACTELION-A-NJ2013-84359

PATIENT
  Age: 88 Year
  Sex: Female

DRUGS (7)
  1. TRACLEER [Suspect]
     Indication: PULMONARY ARTERIAL HYPERTENSION
     Dosage: 125 MG, BID
     Route: 048
     Dates: start: 20080424
  2. OMEPRAZOLE [Concomitant]
     Dosage: 20 MG, UNK
  3. POTASSIUM [Concomitant]
     Dosage: 10 MEQ, UNK
  4. FUROSEMIDE [Concomitant]
     Dosage: AM/PM20 MG, BID
  5. IRON [Concomitant]
     Dosage: 18 MG, QOD
  6. ADVAIR [Concomitant]
     Dosage: 250 MCG, BID
  7. SPIRIVA [Concomitant]
     Dosage: 18 MCG, UNK

REACTIONS (2)
  - Pulmonary embolism [Not Recovered/Not Resolved]
  - Dyspnoea [Not Recovered/Not Resolved]
